FAERS Safety Report 6795564-7 (Version None)
Quarter: 2010Q2

REPORT INFORMATION
  Report Type: 
  Country: None (occurrence: None)
  Receive Date: 20100520
  Receipt Date: 20090831
  Transmission Date: 20101027
  Serious: Yes (Other)
  Sender: FDA-Public Use
  Company Number: 2009262577

PATIENT
  Sex: Female

DRUGS (6)
  1. PROVERA [Suspect]
     Indication: HORMONE REPLACEMENT THERAPY
     Dosage: 2.5 MG, ORAL; 2.5 MG, ORAL; 2.5 MG, ORAL; 2.5 MG, ORAL; 10 MG, ORAL
     Route: 048
     Dates: start: 19940701, end: 19960801
  2. PROVERA [Suspect]
     Indication: HORMONE REPLACEMENT THERAPY
     Dosage: 2.5 MG, ORAL; 2.5 MG, ORAL; 2.5 MG, ORAL; 2.5 MG, ORAL; 10 MG, ORAL
     Route: 048
     Dates: start: 19980201, end: 19980801
  3. PROVERA [Suspect]
     Indication: HORMONE REPLACEMENT THERAPY
     Dosage: 2.5 MG, ORAL; 2.5 MG, ORAL; 2.5 MG, ORAL; 2.5 MG, ORAL; 10 MG, ORAL
     Route: 048
     Dates: end: 19990505
  4. PROVERA [Suspect]
     Indication: HORMONE REPLACEMENT THERAPY
     Dosage: 2.5 MG, ORAL; 2.5 MG, ORAL; 2.5 MG, ORAL; 2.5 MG, ORAL; 10 MG, ORAL
     Route: 048
     Dates: start: 19930601
  5. PROVERA [Suspect]
     Indication: HORMONE REPLACEMENT THERAPY
     Dosage: 2.5 MG, ORAL; 2.5 MG, ORAL; 2.5 MG, ORAL; 2.5 MG, ORAL; 10 MG, ORAL
     Route: 048
     Dates: start: 19970101
  6. PREMARIN [Suspect]
     Indication: HORMONE REPLACEMENT THERAPY
     Dosage: 0.625 MG, ORAL
     Route: 048
     Dates: start: 19890807, end: 19990505

REACTIONS (1)
  - BREAST CANCER FEMALE [None]
